FAERS Safety Report 23829076 (Version 1)
Quarter: 2024Q2

REPORT INFORMATION
  Report Type: Spontaneous
  Country: PK (occurrence: PK)
  Receive Date: 20240508
  Receipt Date: 20240508
  Transmission Date: 20240716
  Serious: Yes (Other)
  Sender: FDA-Public Use
  Company Number: PK-PFIZER INC-202200304531

PATIENT
  Age: 28 Year
  Sex: Male
  Weight: 79 kg

DRUGS (23)
  1. ENBREL [Suspect]
     Active Substance: BENZYL ALCOHOL\ETANERCEPT
     Indication: Takayasu^s arteritis
     Dosage: 50 MILLIGRAM, QWK
     Route: 058
     Dates: start: 20220222
  2. ENBREL [Suspect]
     Active Substance: BENZYL ALCOHOL\ETANERCEPT
     Indication: Rheumatoid arthritis
     Dosage: 50 MILLIGRAM EVERY 10 TH DAY
     Route: 065
  3. ENBREL [Suspect]
     Active Substance: BENZYL ALCOHOL\ETANERCEPT
     Dosage: 50 MILLIGRAM 1 AFTER EVERY TWO WEEKS
     Route: 058
  4. FOLIC ACID [Concomitant]
     Active Substance: FOLIC ACID
     Indication: Product used for unknown indication
     Dosage: 5 MILLIGRAM, 2 TIMES/WK (EVERY MONDAY AND TUESDAY)
     Route: 065
  5. FOLIC ACID [Concomitant]
     Active Substance: FOLIC ACID
     Dosage: 5 MILLIGRAM, 2 TIMES/WK
     Route: 065
  6. FOLIC ACID [Concomitant]
     Active Substance: FOLIC ACID
     Dosage: 5 MILLIGRAM, 2 TIMES/WK (EVERY MONDAY AND TUESDAY)
     Route: 065
  7. DELTACORTRIL [Concomitant]
     Active Substance: PREDNISOLONE
     Indication: Product used for unknown indication
     Dosage: 5+3+0, DAILY
  8. DELTACORTRIL [Concomitant]
     Active Substance: PREDNISOLONE
     Dosage: 5+2+0, DAILY
     Route: 065
  9. DELTACORTRIL [Concomitant]
     Active Substance: PREDNISOLONE
     Dosage: 5+1+0, DAILY
     Route: 065
  10. DELTACORTRIL [Concomitant]
     Active Substance: PREDNISOLONE
     Dosage: 5+0+0, DAILY
     Route: 065
  11. DELTACORTRIL [Concomitant]
     Active Substance: PREDNISOLONE
     Dosage: 4+0+0, DAILY
     Route: 065
  12. DELTACORTRIL [Concomitant]
     Active Substance: PREDNISOLONE
     Dosage: 3+0+0, DAILY
     Route: 065
  13. DELTACORTRIL [Concomitant]
     Active Substance: PREDNISOLONE
     Dosage: 2+0+0, DAILY
     Route: 065
  14. DELTACORTRIL [Concomitant]
     Active Substance: PREDNISOLONE
     Dosage: DAILY AFTER BREAKFAST, FOR WEEK THEN DAILY, DAILY
     Route: 065
  15. CYTOTREXATE [Concomitant]
     Indication: Product used for unknown indication
     Dosage: 7.5 MG, 2X/WEEK
  16. CYTOTREXATE [Concomitant]
     Dosage: UNK, CYCLIC(4 EVERY SATURDAY 3 EVERY SUNDAY, 2 HOURS AFTER BREAKFAST)
     Route: 065
  17. CYTOTREXATE [Concomitant]
     Dosage: UNK, CYCLIC(4 EVERY SATURDAY AND SUNDAY, 2 HOURS AFTER BREAKFAST)UNK
     Route: 065
  18. CYTOTREXATE [Concomitant]
     Dosage: UNK, CYCLIC(5 EVERY SATURDAY AND SUNDAY, 2 HOURS AFTER BREAKFAST)
     Route: 065
  19. CYTOTREXATE [Concomitant]
     Dosage: 7.5 MG, 2X/WEEK
     Route: 065
  20. NORVASC [Concomitant]
     Active Substance: AMLODIPINE BESYLATE
     Indication: Hypertension
     Dosage: 1 DF, DAILY IN MORNING
     Route: 065
  21. TONOFLEX P [Concomitant]
     Indication: Pain
     Dosage: UNK, AS NEEDED
     Route: 065
  22. AMODIP [Concomitant]
     Indication: Hypertension
     Dosage: 10 MILLIGRAM, QD
     Route: 065
  23. CIPRALEX [Concomitant]
     Active Substance: ESCITALOPRAM OXALATE
     Indication: Product used for unknown indication
     Dosage: 5 MILLIGRAM DAILY AFTER BREAKFAST
     Route: 065

REACTIONS (2)
  - Off label use [Unknown]
  - Lower respiratory tract infection [Unknown]
